FAERS Safety Report 10754460 (Version 2)
Quarter: 2015Q1

REPORT INFORMATION
  Report Type: Report from Study
  Country: US (occurrence: US)
  Receive Date: 20150202
  Receipt Date: 20150324
  Transmission Date: 20150721
  Serious: Yes (Hospitalization, Disabling, Other)
  Sender: FDA-Public Use
  Company Number: PHHY2014US160654

PATIENT
  Age: 46 Year
  Sex: Male
  Weight: 87 kg

DRUGS (12)
  1. NORTRIPTYLINE [Concomitant]
     Active Substance: NORTRIPTYLINE
     Indication: PRODUCT USED FOR UNKNOWN INDICATION
     Dosage: 25 MG, (BED TIME)
     Route: 048
  2. CIPROFLOXACIN. [Concomitant]
     Active Substance: CIPROFLOXACIN
     Indication: PRODUCT USED FOR UNKNOWN INDICATION
     Dosage: 500 MG, BID
     Route: 048
  3. ONDANSETRON [Concomitant]
     Active Substance: ONDANSETRON
     Indication: NAUSEA
     Dosage: 8 MG, Q8H (AS NEEDED)
     Route: 048
  4. GILENYA [Suspect]
     Active Substance: FINGOLIMOD HYDROCHLORIDE
     Indication: RELAPSING-REMITTING MULTIPLE SCLEROSIS
     Dosage: 0.5 MG, QD
     Route: 048
     Dates: start: 20140814, end: 20141117
  5. LEVETIRACETAM. [Concomitant]
     Active Substance: LEVETIRACETAM
     Indication: PRODUCT USED FOR UNKNOWN INDICATION
     Dosage: 1000 MG, BID
     Route: 048
  6. ERGOCALCIFEROL. [Concomitant]
     Active Substance: ERGOCALCIFEROL
     Indication: PRODUCT USED FOR UNKNOWN INDICATION
     Dosage: 50000 IU, TWICE WEEKLY
     Route: 048
  7. ALPRAZOLAM. [Concomitant]
     Active Substance: ALPRAZOLAM
     Indication: SLEEP DISORDER
     Dosage: 1 MG, Q4H (AS NEEDED)
     Route: 048
  8. SERTRALINE [Concomitant]
     Active Substance: SERTRALINE HYDROCHLORIDE
     Indication: PRODUCT USED FOR UNKNOWN INDICATION
     Dosage: 25 MG, QD (AT BED TIME)
     Route: 048
  9. DOCUSATE [Concomitant]
     Active Substance: DOCUSATE
     Indication: CONSTIPATION
     Dosage: 100 MG, BID (AS NEEDED)
     Route: 048
  10. DONEPEZIL [Concomitant]
     Active Substance: DONEPEZIL
     Indication: PRODUCT USED FOR UNKNOWN INDICATION
     Dosage: 5 MG, AT BED TIME
     Route: 048
  11. KLONOPIN [Concomitant]
     Active Substance: CLONAZEPAM
     Indication: PRODUCT USED FOR UNKNOWN INDICATION
     Dosage: 0.5 MG, QD
     Route: 048
  12. LACOSAMIDE [Concomitant]
     Active Substance: LACOSAMIDE
     Indication: PRODUCT USED FOR UNKNOWN INDICATION
     Dosage: UNK UNK, (2 TIMES DAILY)
     Route: 048

REACTIONS (16)
  - Lymphocyte percentage decreased [Unknown]
  - Blood urea increased [Unknown]
  - Unresponsive to stimuli [Recovered/Resolved with Sequelae]
  - Fall [Recovered/Resolved with Sequelae]
  - Dysphagia [Recovered/Resolved with Sequelae]
  - White blood cell count increased [Unknown]
  - Neutrophil count increased [Unknown]
  - Mental status changes [Recovered/Resolved with Sequelae]
  - Cognitive disorder [Recovered/Resolved with Sequelae]
  - Central nervous system lesion [Unknown]
  - Blood glucose increased [Unknown]
  - Lymphocyte count decreased [Unknown]
  - Seizure [Recovered/Resolved with Sequelae]
  - Neutrophil percentage increased [Unknown]
  - Platelet count decreased [Unknown]
  - Asthenia [Recovered/Resolved with Sequelae]

NARRATIVE: CASE EVENT DATE: 20141108
